FAERS Safety Report 9046175 (Version 1)
Quarter: 2013Q1

REPORT INFORMATION
  Report Type: Spontaneous
  Country: US (occurrence: US)
  Receive Date: 20130201
  Receipt Date: 20130201
  Transmission Date: 20140127
  Serious: Yes (Other)
  Sender: FDA-Public Use
  Company Number: PHEH2013US002516

PATIENT
  Sex: Female

DRUGS (9)
  1. RECLAST [Suspect]
     Dosage: UNK UKN, UNK
     Route: 042
  2. IMDUR [Concomitant]
  3. ATENOLOL [Concomitant]
  4. PRAVASTATIN [Concomitant]
  5. ZOLOFT [Concomitant]
  6. NEURONTIN [Concomitant]
     Dosage: 300 MG, BID
  7. METFORMIN [Concomitant]
     Dosage: 500 MG, UNK
     Dates: start: 201201
  8. CALCIUM [Concomitant]
  9. VITAMAN [Concomitant]

REACTIONS (1)
  - Joint dislocation [Unknown]
